FAERS Safety Report 14366188 (Version 1)
Quarter: 2018Q1

REPORT INFORMATION
  Report Type: Spontaneous
  Country: DE (occurrence: DE)
  Receive Date: 20180109
  Receipt Date: 20180109
  Transmission Date: 20180509
  Serious: Yes (Hospitalization)
  Sender: FDA-Public Use
  Company Number: DE-ENDO PHARMACEUTICALS INC-2017-012271

PATIENT
  Age: 48 Year
  Sex: Male

DRUGS (2)
  1. IBUPROFEN. [Suspect]
     Active Substance: IBUPROFEN
     Indication: PRODUCT USED FOR UNKNOWN INDICATION
     Dosage: 90 DF, SINGLE, INGESTION
     Route: 048
  2. INHALATIVE BETA-SYMPATHOMIMETIC [Concomitant]
     Indication: ASTHMA
     Dosage: UNK UNK, UNKNOWN, INHALATION
     Route: 050

REACTIONS (5)
  - Circulatory collapse [Unknown]
  - Metabolic acidosis [Unknown]
  - Overdose [Unknown]
  - Suicide attempt [Unknown]
  - Acute kidney injury [Unknown]
